FAERS Safety Report 6566477-0 (Version None)
Quarter: 2010Q1

REPORT INFORMATION
  Report Type: 
  Country: None (occurrence: None)
  Receive Date: 20100202
  Receipt Date: 20100127
  Transmission Date: 20100710
  Serious: Yes (Hospitalization)
  Sender: FDA-Public Use
  Company Number: FR-SANOFI-AVENTIS-2010SA005109

PATIENT
  Age: 33 Year
  Sex: Female

DRUGS (12)
  1. MALOCIDE [Suspect]
     Indication: TOXOPLASMOSIS
     Route: 048
     Dates: start: 20080509, end: 20080521
  2. RIFADIN [Suspect]
     Indication: TUBERCULOSIS
     Route: 042
     Dates: start: 20080515, end: 20080519
  3. PIRILENE [Suspect]
     Indication: TUBERCULOSIS
     Route: 048
     Dates: start: 20080515, end: 20080519
  4. ADIAZINE [Suspect]
     Indication: TOXOPLASMOSIS
     Route: 048
     Dates: start: 20080509, end: 20080519
  5. TRIFLUCAN [Suspect]
     Indication: ORAL FUNGAL INFECTION
     Route: 048
     Dates: start: 20080509, end: 20080519
  6. RIMIFON [Suspect]
     Indication: TUBERCULOSIS
     Route: 042
     Dates: start: 20080515, end: 20080519
  7. MYAMBUTOL [Suspect]
     Indication: TUBERCULOSIS
     Route: 048
     Dates: start: 20080515
  8. MYAMBUTOL [Suspect]
     Route: 048
  9. ZECLAR [Suspect]
     Indication: DRUG USE FOR UNKNOWN INDICATION
     Route: 048
     Dates: start: 20080515
  10. KALETRA [Concomitant]
     Dates: start: 20080509, end: 20080515
  11. TRUVADA [Concomitant]
     Dates: start: 20080509, end: 20080515
  12. LEDERFOLIN [Concomitant]
     Indication: TOXOPLASMOSIS
     Dates: start: 20080509, end: 20080519

REACTIONS (1)
  - HEPATITIS CHOLESTATIC [None]
